FAERS Safety Report 7442209-9 (Version None)
Quarter: 2011Q2

REPORT INFORMATION
  Report Type: 
  Country: None (occurrence: None)
  Receive Date: 20110428
  Receipt Date: 20110415
  Transmission Date: 20111010
  Serious: Yes (Hospitalization, Other)
  Sender: FDA-Public Use
  Company Number: US-ELI_LILLY_AND_COMPANY-US201103004201

PATIENT
  Sex: Female
  Weight: 50.794 kg

DRUGS (13)
  1. ZOCOR [Concomitant]
  2. THYROID TAB [Concomitant]
  3. FORTEO [Suspect]
     Indication: OSTEOPOROSIS
     Dosage: 20 UG, DAILY (1/D)
     Route: 058
     Dates: start: 20070901, end: 20090109
  4. CELEBREX [Concomitant]
     Indication: PAIN
  5. LEVOXYL [Concomitant]
     Dosage: 50 UG, QD
  6. URISED [Concomitant]
     Dosage: UNK, BID
     Route: 065
  7. POTASSIUM [Concomitant]
     Dosage: UNK, BID
     Route: 065
  8. VITAMIN D [Concomitant]
  9. TOVIAZ [Concomitant]
     Dosage: 8 MG, UNK
  10. NEXIUM [Concomitant]
  11. TOVIAZ [Concomitant]
     Dosage: 4 MG, UNK
  12. FOSAMAX [Concomitant]
  13. ASACOL [Concomitant]

REACTIONS (4)
  - FALL [None]
  - PELVIC FRACTURE [None]
  - BACK PAIN [None]
  - INTENTIONAL DRUG MISUSE [None]
